FAERS Safety Report 5646415-5 (Version None)
Quarter: 2008Q1

REPORT INFORMATION
  Report Type: 
  Country: None (occurrence: None)
  Receive Date: 20080227
  Receipt Date: 20080218
  Transmission Date: 20080703
  Serious: Yes (Disabling)
  Sender: FDA-Public Use
  Company Number: GXKR2008GB01751

PATIENT
  Age: 55 Year
  Sex: Female

DRUGS (4)
  1. METRONIDAZOLE [Suspect]
     Dosage: 400 MG, ORAL
     Route: 048
     Dates: start: 20080109, end: 20080112
  2. BETAHISTINE (BETAHISTINE) [Concomitant]
  3. LISINOPRIL [Concomitant]
  4. OXYBUTYNIN CHLORIDE [Concomitant]

REACTIONS (4)
  - JOINT SWELLING [None]
  - MUSCLE SPASMS [None]
  - NEUROPATHY PERIPHERAL [None]
  - OEDEMA PERIPHERAL [None]
